FAERS Safety Report 13891766 (Version 1)
Quarter: 2017Q3

REPORT INFORMATION
  Report Type: Spontaneous
  Country: US (occurrence: US)
  Receive Date: 20170822
  Receipt Date: 20170822
  Transmission Date: 20171127
  Serious: No
  Sender: FDA-Public Use
  Company Number: US-LANNETT COMPANY, INC.-US-2016LAN001626

PATIENT

DRUGS (2)
  1. GLYCOLAX [Suspect]
     Active Substance: POLYETHYLENE GLYCOL 3350
     Dosage: 8.5 MG, IN THE AM
     Route: 048
     Dates: start: 20160914, end: 20160914
  2. GLYCOLAX [Suspect]
     Active Substance: POLYETHYLENE GLYCOL 3350
     Indication: CONSTIPATION
     Dosage: 8.5 G, BID
     Route: 048
     Dates: start: 20160913, end: 20160913

REACTIONS (4)
  - Drug administered to patient of inappropriate age [Recovered/Resolved]
  - Abdominal pain upper [Not Recovered/Not Resolved]
  - Bladder spasm [Recovered/Resolved]
  - Blood urine present [Recovered/Resolved]

NARRATIVE: CASE EVENT DATE: 20160913
